FAERS Safety Report 7083073-X (Version None)
Quarter: 2010Q4

REPORT INFORMATION
  Report Type: 
  Country: None (occurrence: None)
  Receive Date: 20101027
  Receipt Date: 20100617
  Transmission Date: 20110411
  Serious: Yes (Other)
  Sender: FDA-Public Use
  Company Number: GER/UKI/10/0015795

PATIENT
  Age: 66 Year
  Sex: Female
  Weight: 81 kg

DRUGS (13)
  1. BENDROFLUMETHIAZIDE (BENDROFLUMETHIAZIDE) [Suspect]
     Indication: HYPERTENSION
     Dosage: 2.5 MG, 1 IN 1 D, ORAL
     Route: 048
     Dates: start: 20050101, end: 20100528
  2. OMEPRAZOLE [Suspect]
     Indication: PRODUCT USED FOR UNKNOWN INDICATION
     Dosage: 20 MG, 1 IN 1 D, ORAL
     Route: 048
     Dates: start: 20050101, end: 20100528
  3. DOCETAXEL [Suspect]
     Indication: BREAST CANCER
     Dosage: INTRAVENOUS
     Route: 042
     Dates: start: 20100415
  4. ASPIRIN (ACETYLSALICIYLIC ACID) [Concomitant]
  5. BETAHISTINE DIHYDROCHLORIDE (BETAHISTINE HYDROCHLORIDE) [Concomitant]
  6. CANDESARTAN CILEXETIL [Concomitant]
  7. CYCLOPHOSPHAMIDE ANHYDROUS (CYCLOPHOSPHAMIDE) [Concomitant]
  8. DEXAMETHASONE [Concomitant]
  9. DOMPERIDONE (DOMPERIDONE) [Concomitant]
  10. EPIRUBICIN [Concomitant]
  11. GRANISETRON (GRANISETRON) [Concomitant]
  12. METFORMIN HCL [Concomitant]
  13. SIMVASTATIN [Concomitant]

REACTIONS (4)
  - DIARRHOEA [None]
  - HYPOCALCAEMIA [None]
  - HYPOMAGNESAEMIA [None]
  - TETANY [None]
